FAERS Safety Report 5411388-7 (Version None)
Quarter: 2007Q3

REPORT INFORMATION
  Report Type: 
  Country: None (occurrence: None)
  Receive Date: 20070810
  Receipt Date: 20070806
  Transmission Date: 20080115
  Serious: Yes (Hospitalization)
  Sender: FDA-Public Use
  Company Number: US-ASTRAZENECA-2007UW18956

PATIENT
  Age: 80 Year
  Sex: Female
  Weight: 69.9 kg

DRUGS (5)
  1. NEXIUM [Suspect]
     Indication: DYSPEPSIA
     Route: 048
     Dates: start: 20070401, end: 20070710
  2. CENTRUM SILVER [Concomitant]
  3. ASPIRIN [Concomitant]
  4. LISINOPRIL [Concomitant]
     Route: 048
  5. CARTIA XT [Concomitant]

REACTIONS (2)
  - CONSTIPATION [None]
  - KNEE ARTHROPLASTY [None]
